FAERS Safety Report 17707938 (Version 1)
Quarter: 2020Q2

REPORT INFORMATION
  Report Type: Spontaneous
  Country: AR (occurrence: AR)
  Receive Date: 20200425
  Receipt Date: 20200425
  Transmission Date: 20200714
  Serious: Yes (Other)
  Sender: FDA-Public Use
  Company Number: AR-AMGEN-ARGSP2020067481

PATIENT
  Age: 67 Year
  Sex: Female

DRUGS (1)
  1. ENBREL [Suspect]
     Active Substance: ETANERCEPT
     Indication: RHEUMATOID ARTHRITIS
     Dosage: 50 MG, WEEKLY
     Route: 065
     Dates: start: 20190701, end: 20200417

REACTIONS (6)
  - Tremor [Unknown]
  - Drug ineffective [Unknown]
  - Osteoarthritis [Unknown]
  - Hyperhidrosis [Unknown]
  - Diabetes mellitus [Unknown]
  - Thyroid disorder [Unknown]

NARRATIVE: CASE EVENT DATE: 2020
